FAERS Safety Report 5478009-9 (Version None)
Quarter: 2007Q4

REPORT INFORMATION
  Report Type: 
  Country: None (occurrence: None)
  Receive Date: 20071005
  Receipt Date: 20071002
  Transmission Date: 20080405
  Serious: Yes (Death)
  Sender: FDA-Public Use
  Company Number: PHEH2007US12273

PATIENT
  Age: 70 Year
  Sex: Male
  Weight: 88.888 kg

DRUGS (2)
  1. EXFORGE [Suspect]
     Indication: HYPERTENSION
     Dosage: 5/160MG, QD
     Dates: start: 20070807, end: 20070821
  2. EXFORGE [Suspect]
     Dosage: 5/320MG, QD
     Dates: start: 20070822, end: 20070901

REACTIONS (2)
  - BLOOD PRESSURE INADEQUATELY CONTROLLED [None]
  - MYOCARDIAL INFARCTION [None]
